FAERS Safety Report 12766702 (Version 1)
Quarter: 2016Q3

REPORT INFORMATION
  Report Type: Spontaneous
  Country: HR (occurrence: HR)
  Receive Date: 20160921
  Receipt Date: 20160921
  Transmission Date: 20161109
  Serious: Yes (Hospitalization, Other)
  Sender: FDA-Public Use
  Company Number: HR-PFIZER INC-2016435446

PATIENT
  Sex: Female

DRUGS (5)
  1. FLUZEPAM /00246102/ [Suspect]
     Active Substance: FLURAZEPAM HYDROCHLORIDE
     Dosage: UNK
     Route: 048
     Dates: start: 201607
  2. XANAX [Suspect]
     Active Substance: ALPRAZOLAM
     Dosage: UNK
     Route: 048
     Dates: start: 201607
  3. MISAR /00595201/ [Suspect]
     Active Substance: ALPRAZOLAM
     Dosage: UNK
     Route: 048
     Dates: start: 201607
  4. KATENA [Suspect]
     Active Substance: GABAPENTIN
     Dosage: 2 BLISTERS
     Route: 048
     Dates: start: 201607
  5. LUMIDOL RETARD [Suspect]
     Active Substance: TRAMADOL HYDROCHLORIDE
     Dosage: 20 DF
     Route: 048
     Dates: start: 201607

REACTIONS (4)
  - Suicide attempt [Unknown]
  - Coma [Unknown]
  - Respiratory depression [Unknown]
  - Intentional overdose [Unknown]

NARRATIVE: CASE EVENT DATE: 201607
